FAERS Safety Report 14013844 (Version 1)
Quarter: 2017Q3

REPORT INFORMATION
  Report Type: Spontaneous
  Country: ES (occurrence: ES)
  Receive Date: 20170926
  Receipt Date: 20170926
  Transmission Date: 20171128
  Serious: Yes (Other)
  Sender: FDA-Public Use
  Company Number: ES-ABBVIE-17P-144-2113240-00

PATIENT
  Age: 52 Year
  Sex: Male

DRUGS (3)
  1. BEXAROTENO [Suspect]
     Active Substance: BEXAROTENE
     Indication: MYCOSIS FUNGOIDES
     Dosage: 150 MG, QD
     Route: 048
     Dates: start: 20170221
  2. SECALIP SUPRA [Suspect]
     Active Substance: FENOFIBRATE
     Indication: PRODUCT USED FOR UNKNOWN INDICATION
     Dosage: UNK UNK, QD 160MG COMPRIMIDOS RECUBIERTOS CON PEL?CULA
     Route: 048
     Dates: start: 20170214
  3. LEVOTIROXINA SODICA [Suspect]
     Active Substance: LEVOTHYROXINE SODIUM
     Indication: PRODUCT USED FOR UNKNOWN INDICATION
     Dosage: 50 ?G, QD
     Route: 048
     Dates: start: 20170214

REACTIONS (1)
  - Anosmia [Recovering/Resolving]

NARRATIVE: CASE EVENT DATE: 20170303
